FAERS Safety Report 19931490 (Version 2)
Quarter: 2022Q1

REPORT INFORMATION
  Report Type: Spontaneous
  Country: US (occurrence: US)
  Receive Date: 20211008
  Receipt Date: 20220111
  Transmission Date: 20220423
  Serious: Yes (Death)
  Sender: FDA-Public Use
  Company Number: US-AVEO ONCOLOGY-2021-AVEO-US003507

PATIENT

DRUGS (26)
  1. FOTIVDA [Suspect]
     Active Substance: TIVOZANIB HYDROCHLORIDE
     Indication: Renal cell carcinoma
     Dosage: 1.34 MG, DAILY FOR 21 DAYS OF EVERY 28 DAYS
     Route: 048
     Dates: start: 20210524, end: 20210803
  2. ASPIRIN [Concomitant]
     Active Substance: ASPIRIN
     Dosage: 81 MG
  3. ATORVASTATIN [Concomitant]
     Active Substance: ATORVASTATIN
     Dosage: 80 MG
  4. COMPAZINE [Concomitant]
     Active Substance: PROCHLORPERAZINE MALEATE
     Dosage: 10 MG
  5. COREG [Concomitant]
     Active Substance: CARVEDILOL
     Dosage: 3.125 MG
  6. DEXAMETHASONE [Concomitant]
     Active Substance: DEXAMETHASONE
     Dosage: 0.5 MG/5ML ORAL SOLUTION
     Route: 048
  7. DURAGESIC [Concomitant]
     Active Substance: FENTANYL
     Dosage: 75 UG/HR TRANSDERMAL PATCH
  8. FENOFIBRATE [Concomitant]
     Active Substance: FENOFIBRATE
     Dosage: 160 MG
  9. FENTANYL [Concomitant]
     Active Substance: FENTANYL
     Dosage: 100 UG/HR TRANSDERMAL PATCH
  10. GABAPENTIN [Concomitant]
     Active Substance: GABAPENTIN
     Dosage: 300 MG
  11. HUMALOG [Concomitant]
     Active Substance: INSULIN LISPRO
     Dosage: 200 UNITS/ML 3ML
  12. HYDROCHLOROTHIAZIDE [Concomitant]
     Active Substance: HYDROCHLOROTHIAZIDE
     Dosage: 25 MG
  13. LOMOTIL [Concomitant]
     Active Substance: ATROPINE SULFATE\DIPHENOXYLATE HYDROCHLORIDE
     Dosage: 2.5 MG-0.025 MG
  14. MORPHINE [Concomitant]
     Active Substance: MORPHINE
     Dosage: 15 MG
  15. OMEGA-3-ACID ETHYL ESTERS [Concomitant]
     Active Substance: OMEGA-3-ACID ETHYL ESTERS
     Dosage: 1 G
     Route: 048
  16. ONDANSETRON HCL [Concomitant]
     Active Substance: ONDANSETRON HYDROCHLORIDE
     Dosage: 8 MG
  17. PLAVIX [Concomitant]
     Active Substance: CLOPIDOGREL BISULFATE
     Dosage: 75 MG
  18. POTASSIUM CHLORIDE [Concomitant]
     Active Substance: POTASSIUM CHLORIDE
     Dosage: 10 MEQ
  19. TRESIBA [Concomitant]
     Active Substance: INSULIN DEGLUDEC
     Dosage: 100 UNITS/ML
  20. XANAX [Concomitant]
     Active Substance: ALPRAZOLAM
     Dosage: 1 MG
     Route: 048
  21. ZYRTEC [Concomitant]
     Active Substance: CETIRIZINE HYDROCHLORIDE
     Dosage: 10 MG
  22. AMLODIPINE [Concomitant]
     Active Substance: AMLODIPINE BESYLATE
  23. PROCHLORPERAZINE [Concomitant]
     Active Substance: PROCHLORPERAZINE
  24. LISINOPRIL [Concomitant]
     Active Substance: LISINOPRIL
  25. ZOFRAN [Concomitant]
     Active Substance: ONDANSETRON HYDROCHLORIDE
  26. PERCOCET [Concomitant]
     Active Substance: ACETAMINOPHEN\OXYCODONE HYDROCHLORIDE

REACTIONS (4)
  - Disease progression [Fatal]
  - Blood pressure decreased [Unknown]
  - Renal cell carcinoma recurrent [Unknown]
  - Metastases to lung [Unknown]

NARRATIVE: CASE EVENT DATE: 20210803
